FAERS Safety Report 10203140 (Version 1)
Quarter: 2014Q2

REPORT INFORMATION
  Report Type: Spontaneous
  Country: SE (occurrence: SE)
  Receive Date: 20140529
  Receipt Date: 20140529
  Transmission Date: 20141212
  Serious: Yes (Other)
  Sender: FDA-Public Use
  Company Number: SE-ROCHE-1409372

PATIENT
  Sex: Female
  Weight: 81 kg

DRUGS (5)
  1. XOLAIR [Suspect]
     Indication: ASTHMA
     Route: 065
     Dates: start: 20101207
  2. XOLAIR [Suspect]
     Indication: DERMATITIS ATOPIC
     Route: 065
     Dates: start: 20110426, end: 20110426
  3. SERETIDE DISKUS [Concomitant]
  4. BAMBEC [Concomitant]
  5. TELFAST [Concomitant]

REACTIONS (5)
  - Skin burning sensation [Recovering/Resolving]
  - Rash [Recovering/Resolving]
  - Conjunctivitis [Unknown]
  - Asthma [Unknown]
  - Dermatitis atopic [Unknown]
